FAERS Safety Report 4817077-1 (Version None)
Quarter: 2005Q4

REPORT INFORMATION
  Report Type: 
  Country: None (occurrence: None)
  Receive Date: 20051018
  Receipt Date: 20050727
  Transmission Date: 20060501
  Serious: Yes (Hospitalization)
  Sender: FDA-Public Use
  Company Number: PHEH2005US06894

PATIENT
  Age: 78 Year
  Sex: Male
  Weight: 78.9 kg

DRUGS (1)
  1. ZOMETA [Suspect]
     Indication: HYPERCALCAEMIA
     Dosage: 4MG MONTHLY, INTRAVENOUS
     Route: 042
     Dates: start: 20041229, end: 20041229

REACTIONS (2)
  - DIALYSIS [None]
  - RENAL FAILURE [None]
